FAERS Safety Report 5198076-X (Version None)
Quarter: 2006Q4

REPORT INFORMATION
  Report Type: 
  Country: None (occurrence: None)
  Receive Date: 20061228
  Receipt Date: 20061218
  Transmission Date: 20070319
  Serious: Yes (Other)
  Sender: FDA-Public Use
  Company Number: 15278

PATIENT
  Age: 52 Year
  Sex: Male

DRUGS (5)
  1. DEXAMETHASONE [Suspect]
     Indication: MULTIPLE MYELOMA
  2. VINCRISTINE [Suspect]
     Indication: MULTIPLE MYELOMA
  3. ADRIAMYCIN PFS [Suspect]
     Indication: MULTIPLE MYELOMA
  4. EPOGEN [Concomitant]
  5. ZOLENDRONATE [Concomitant]

REACTIONS (1)
  - MELANODERMIA [None]
